FAERS Safety Report 23940595 (Version 2)
Quarter: 2024Q3

REPORT INFORMATION
  Report Type: Report from Study
  Country: US (occurrence: US)
  Receive Date: 20240605
  Receipt Date: 20240722
  Transmission Date: 20241017
  Serious: Yes (Other)
  Sender: ABBVIE
  Company Number: US-ABBVIE-5785909

PATIENT
  Sex: Male

DRUGS (1)
  1. RINVOQ [Suspect]
     Active Substance: UPADACITINIB
     Indication: Rheumatoid arthritis
     Dosage: STRENGTH: 15MG
     Route: 048
     Dates: start: 20240222, end: 20240515

REACTIONS (4)
  - Arterial occlusive disease [Recovered/Resolved]
  - Arthralgia [Recovering/Resolving]
  - Pain in extremity [Recovering/Resolving]
  - Cardiac stress test abnormal [Unknown]

NARRATIVE: CASE EVENT DATE: 20240101
